FAERS Safety Report 9795527 (Version 1)
Quarter: 2014Q1

REPORT INFORMATION
  Report Type: Report from Study
  Country: US (occurrence: US)
  Receive Date: 20140103
  Receipt Date: 20140103
  Transmission Date: 20141002
  Serious: Yes (Hospitalization)
  Sender: FDA-Public Use
  Company Number: US-ROCHE-1328660

PATIENT
  Age: 73 Year
  Sex: 0

DRUGS (2)
  1. RITUXIMAB [Suspect]
     Indication: PRODUCT USED FOR UNKNOWN INDICATION
     Dosage: STRENGTH (100 MG AND 500 MG) VIALS
     Route: 042
     Dates: start: 20110511, end: 20110830
  2. BENDAMUSTINE [Concomitant]
     Dosage: STRENGTH (25 MG AND 100 MG) VIALS
     Route: 042
     Dates: start: 20110511, end: 20110830

REACTIONS (1)
  - Pleural effusion [Unknown]
